FAERS Safety Report 5711357-3 (Version None)
Quarter: 2008Q2

REPORT INFORMATION
  Report Type: 
  Country: None (occurrence: None)
  Receive Date: 20080421
  Receipt Date: 20080418
  Transmission Date: 20081010
  Serious: Yes (Life-Threatening, Other)
  Sender: FDA-Public Use
  Company Number: B0515797A

PATIENT
  Age: 10 Year
  Sex: Male

DRUGS (2)
  1. RELENZA [Suspect]
     Indication: INFLUENZA
     Dosage: 20MG TWICE PER DAY
     Route: 055
     Dates: start: 20080223, end: 20080227
  2. BRUFEN [Concomitant]
     Dosage: 600MG PER DAY
     Route: 048
     Dates: start: 20080223, end: 20080227

REACTIONS (2)
  - ABNORMAL BEHAVIOUR [None]
  - CONFUSIONAL STATE [None]
